FAERS Safety Report 4609716-5 (Version None)
Quarter: 2005Q1

REPORT INFORMATION
  Report Type: 
  Country: None (occurrence: None)
  Receive Date: 20050314
  Receipt Date: 20050301
  Transmission Date: 20050727
  Serious: Yes (Hospitalization)
  Sender: FDA-Public Use
  Company Number: 2005UW03794

PATIENT
  Sex: Male

DRUGS (1)
  1. LOSEC [Suspect]
     Dosage: 10 MG DAILY PO
     Route: 048

REACTIONS (1)
  - BLOOD IRON INCREASED [None]
